FAERS Safety Report 14998430 (Version 2)
Quarter: 2018Q2

REPORT INFORMATION
  Report Type: Spontaneous
  Country: CN (occurrence: CN)
  Receive Date: 20180611
  Receipt Date: 20180612
  Transmission Date: 20180711
  Serious: Yes (Other)
  Sender: FDA-Public Use
  Company Number: CN-JNJFOC-20180600359

PATIENT

DRUGS (2)
  1. MOTRIN [Suspect]
     Active Substance: IBUPROFEN
     Route: 065
  2. MOTRIN [Suspect]
     Active Substance: IBUPROFEN
     Indication: POSTOPERATIVE ANALGESIA
     Dosage: MAXIMUM DOSE WAS 0.4 G,TID. DOSE DETERMINED THE DOSAGE ACCORDING TO THE PATIENT-REPORTED PAIN LEVEL
     Route: 065

REACTIONS (6)
  - Urinary retention [Unknown]
  - Off label use [Unknown]
  - Product use issue [Unknown]
  - Abdominal discomfort [Unknown]
  - Product use in unapproved indication [Unknown]
  - Rash [Unknown]
